FAERS Safety Report 18632615 (Version 4)
Quarter: 2025Q2

REPORT INFORMATION
  Report Type: Report from Study
  Country: ES (occurrence: ES)
  Receive Date: 20201218
  Receipt Date: 20250630
  Transmission Date: 20250717
  Serious: Yes (Death, Hospitalization, Other)
  Sender: AUROBINDO
  Company Number: ES-PFIZER INC-2020472968

PATIENT
  Age: 73 Year
  Sex: Male

DRUGS (11)
  1. LINEZOLID [Suspect]
     Active Substance: LINEZOLID
     Indication: Bacterial infection
     Route: 065
     Dates: start: 2020
  2. LINEZOLID [Suspect]
     Active Substance: LINEZOLID
     Indication: Antibiotic therapy
  3. MEROPENEM [Suspect]
     Active Substance: MEROPENEM
     Indication: Bacterial infection
     Route: 065
     Dates: start: 2020
  4. MEROPENEM [Suspect]
     Active Substance: MEROPENEM
     Indication: Antibiotic therapy
  5. PIPERACILLIN AND TAZOBACTAM [Suspect]
     Active Substance: PIPERACILLIN SODIUM\TAZOBACTAM SODIUM
     Indication: Bacterial infection
     Route: 065
     Dates: start: 2020
  6. PIPERACILLIN AND TAZOBACTAM [Suspect]
     Active Substance: PIPERACILLIN SODIUM\TAZOBACTAM SODIUM
     Indication: Antibiotic therapy
  7. CEFTRIAXONE [Suspect]
     Active Substance: CEFTRIAXONE
     Indication: Bacterial infection
     Route: 065
     Dates: start: 2020
  8. CEFTRIAXONE [Suspect]
     Active Substance: CEFTRIAXONE
     Indication: Antibiotic therapy
  9. AZITHROMYCIN [Concomitant]
     Active Substance: AZITHROMYCIN
     Indication: COVID-19
     Route: 065
     Dates: start: 2020
  10. HYDROXYCHLOROQUINE [Concomitant]
     Active Substance: HYDROXYCHLOROQUINE
     Indication: COVID-19
     Route: 065
     Dates: start: 2020
  11. LOPINAVIR\RITONAVIR [Concomitant]
     Active Substance: LOPINAVIR\RITONAVIR
     Indication: COVID-19
     Route: 065
     Dates: start: 2020

REACTIONS (1)
  - Bronchopulmonary aspergillosis [Fatal]

NARRATIVE: CASE EVENT DATE: 20200101
